FAERS Safety Report 5338988-7 (Version None)
Quarter: 2007Q2

REPORT INFORMATION
  Report Type: 
  Country: None (occurrence: None)
  Receive Date: 20070530
  Receipt Date: 20070521
  Transmission Date: 20071010
  Serious: Yes (Other)
  Sender: FDA-Public Use
  Company Number: NL-PFIZER INC-2007028395

PATIENT
  Sex: Female
  Weight: 63 kg

DRUGS (3)
  1. CELEBREX [Suspect]
     Indication: OSTEOARTHRITIS
     Route: 048
     Dates: start: 20050101, end: 20070414
  2. CELEBREX [Suspect]
     Indication: SUNCT SYNDROME
  3. PARACETAMOL [Concomitant]
     Indication: SUNCT SYNDROME
     Route: 054

REACTIONS (4)
  - DIPLOPIA [None]
  - INTRACRANIAL PRESSURE INCREASED [None]
  - PAPILLOEDEMA [None]
  - VISION BLURRED [None]
